FAERS Safety Report 6641222-9 (Version None)
Quarter: 2010Q1

REPORT INFORMATION
  Report Type: 
  Country: None (occurrence: None)
  Receive Date: 20100318
  Receipt Date: 20100315
  Transmission Date: 20100710
  Serious: Yes (Death, Hospitalization, Other)
  Sender: FDA-Public Use
  Company Number: PHEH2005US10978

PATIENT
  Sex: Female
  Weight: 57.142 kg

DRUGS (51)
  1. AREDIA [Suspect]
     Indication: METASTASES TO BONE
     Dosage: UNK, UNK
     Dates: start: 19971215, end: 20020311
  2. ZOMETA [Suspect]
     Indication: METASTASES TO BONE
     Dosage: UNK
     Dates: start: 20020506, end: 20030703
  3. TOPROL-XL [Concomitant]
     Dosage: 25 MG, QD
  4. COUMADIN [Concomitant]
  5. SINEMET [Concomitant]
  6. HERCEPTIN [Concomitant]
  7. LUMIGAN [Concomitant]
  8. PRILOSEC [Concomitant]
  9. ZELODA [Concomitant]
  10. TAXOTERE [Concomitant]
     Dates: start: 20000201
  11. CYTOXAN [Concomitant]
  12. FLUOROURACIL [Concomitant]
  13. ARIMIDEX [Concomitant]
     Indication: BREAST CANCER
     Dosage: 1 MG, QD
     Route: 048
     Dates: start: 19980601
  14. CALCIUM [Concomitant]
  15. CARBIDOPA [Concomitant]
     Indication: PARKINSON'S DISEASE
  16. TIMOLOL MALEATE [Concomitant]
  17. ASPIRIN [Concomitant]
  18. GEMZAR [Concomitant]
     Indication: CHEMOTHERAPY
  19. LIPITOR [Concomitant]
     Dosage: 10MG EVERY OTHER DAY
  20. CITRACAL + D [Concomitant]
  21. TUMS [Concomitant]
     Dosage: 1/2 PER DAY
  22. VITAMIN D [Concomitant]
  23. TRASTUZUMAB [Concomitant]
  24. EVISTA [Concomitant]
     Indication: OSTEOPOROSIS
  25. ACTONEL [Concomitant]
     Indication: OSTEOPENIA
  26. VITAMINS [Concomitant]
  27. TAMOXIFEN CITRATE [Concomitant]
  28. TOPRAL [Concomitant]
  29. COUMADIN [Concomitant]
  30. RADIATION THERAPY [Concomitant]
  31. AVASTIN [Concomitant]
     Dosage: UNK
  32. TAGAMET [Concomitant]
     Dosage: UNK
  33. TAXOL [Concomitant]
     Dosage: UNK
  34. MEDRALONE [Concomitant]
     Dosage: UNK
  35. ALOXI [Concomitant]
     Dosage: UNK
  36. ANZEMET [Concomitant]
     Dosage: UNK
  37. PEPCID [Concomitant]
     Dosage: UNK
  38. DECADRON [Concomitant]
     Dosage: UNK
  39. ZOFRAN [Concomitant]
     Dosage: UNK
  40. ACIPHEX [Concomitant]
     Dosage: UNK
  41. NEXIUM [Concomitant]
     Dosage: UNK
  42. DILANTIN                                /AUS/ [Concomitant]
     Dosage: UNK
  43. HUMALIN [Concomitant]
     Dosage: UNK
     Dates: start: 20070105
  44. NEUPOGEN [Concomitant]
     Dosage: UNK
  45. FRESH FROZEN PLASMA [Concomitant]
     Dosage: UNK
     Dates: start: 20070105
  46. NAVELBINE [Concomitant]
  47. ROBAXIFEN [Concomitant]
  48. DOXIL [Concomitant]
  49. MITOXANTRONE [Concomitant]
  50. DEXAMETHASONE [Concomitant]
  51. XANAX [Concomitant]

REACTIONS (81)
  - ACTINOMYCOSIS [None]
  - AORTIC ARTERIOSCLEROSIS [None]
  - AORTIC VALVE INCOMPETENCE [None]
  - APHONIA [None]
  - BONE DEBRIDEMENT [None]
  - BONE DISORDER [None]
  - BRAIN NEOPLASM MALIGNANT [None]
  - CALCINOSIS [None]
  - CONFUSIONAL STATE [None]
  - CYST [None]
  - CYST ASPIRATION [None]
  - DEATH [None]
  - DEHYDRATION [None]
  - DENTAL CARIES [None]
  - DEPRESSION [None]
  - DIARRHOEA [None]
  - DIVERTICULUM [None]
  - DYSPHONIA [None]
  - ENDODONTIC PROCEDURE [None]
  - ERYTHEMA [None]
  - EYE HAEMORRHAGE [None]
  - FISTULA [None]
  - GINGIVAL BLEEDING [None]
  - GLAUCOMA [None]
  - HAEMORRHAGE INTRACRANIAL [None]
  - HAEMORRHOIDS [None]
  - HEADACHE [None]
  - HYPERKERATOSIS [None]
  - HYPOKALAEMIA [None]
  - HYPOPHOSPHATAEMIA [None]
  - LEFT ATRIAL DILATATION [None]
  - LEFT VENTRICULAR HYPERTROPHY [None]
  - LOOSE TOOTH [None]
  - LUMBAR SPINAL STENOSIS [None]
  - LUNG DISORDER [None]
  - LYMPHADENOPATHY MEDIASTINAL [None]
  - LYMPHOEDEMA [None]
  - MALIGNANT NEOPLASM PROGRESSION [None]
  - MASTECTOMY [None]
  - MAXILLOFACIAL OPERATION [None]
  - METASTASES TO LIVER [None]
  - METASTASES TO LUNG [None]
  - METASTASES TO SPINE [None]
  - METASTASES TO THE MEDIASTINUM [None]
  - MITRAL VALVE INCOMPETENCE [None]
  - NECK PAIN [None]
  - OPEN WOUND [None]
  - OSTEOARTHRITIS [None]
  - OSTEOMYELITIS [None]
  - OSTEONECROSIS [None]
  - OSTEOPENIA [None]
  - OSTEOPOROSIS [None]
  - PAIN [None]
  - PAIN IN EXTREMITY [None]
  - PARKINSON'S DISEASE [None]
  - PERIODONTAL INFECTION [None]
  - PERIODONTAL OPERATION [None]
  - PERIODONTITIS [None]
  - PLEURAL EFFUSION [None]
  - PRIMARY SEQUESTRUM [None]
  - PRURITUS [None]
  - PULMONARY VALVE INCOMPETENCE [None]
  - PURULENT DISCHARGE [None]
  - RADICULAR SYNDROME [None]
  - REFLUX LARYNGITIS [None]
  - ROTATOR CUFF SYNDROME [None]
  - SEASONAL ALLERGY [None]
  - SEQUESTRECTOMY [None]
  - SINUS BRADYCARDIA [None]
  - SINUSITIS [None]
  - SPINAL OSTEOARTHRITIS [None]
  - SWELLING [None]
  - TOOTH DISORDER [None]
  - TOOTH EXTRACTION [None]
  - TOOTH IMPACTED [None]
  - TOOTH LOSS [None]
  - TREMOR [None]
  - TRICUSPID VALVE INCOMPETENCE [None]
  - VASOGENIC CEREBRAL OEDEMA [None]
  - VISUAL IMPAIRMENT [None]
  - WHEEZING [None]
